FAERS Safety Report 25164737 (Version 1)
Quarter: 2025Q2

REPORT INFORMATION
  Report Type: Report from Study
  Country: MX (occurrence: MX)
  Receive Date: 20250406
  Receipt Date: 20250406
  Transmission Date: 20250717
  Serious: Yes (Hospitalization)
  Sender: JOHNSON AND JOHNSON
  Company Number: MX-JNJFOC-20250403700

PATIENT
  Age: 48 Year
  Sex: Female
  Weight: 60 kg

DRUGS (1)
  1. SIMPONI [Suspect]
     Active Substance: GOLIMUMAB
     Indication: Rheumatoid arthritis
     Dosage: FORM STRENGTH: 50MG
     Route: 058
     Dates: start: 20231011

REACTIONS (2)
  - Hypoglycaemia [Unknown]
  - Gastrointestinal infection [Unknown]
